FAERS Safety Report 6885922-4 (Version None)
Quarter: 2010Q3

REPORT INFORMATION
  Report Type: 
  Country: None (occurrence: None)
  Receive Date: 20100729
  Receipt Date: 20080923
  Transmission Date: 20110219
  Serious: No
  Sender: FDA-Public Use
  Company Number: US-PFIZER INC-2008080645

PATIENT
  Sex: Male
  Weight: 81.818 kg

DRUGS (3)
  1. CELEBREX [Suspect]
     Indication: RHEUMATOID ARTHRITIS
     Dates: start: 20080922
  2. TRAMADOL HYDROCHLORIDE [Concomitant]
  3. CYMBALTA [Concomitant]

REACTIONS (1)
  - INSOMNIA [None]
